FAERS Safety Report 13471104 (Version 2)
Quarter: 2017Q2

REPORT INFORMATION
  Report Type: Spontaneous
  Country: US (occurrence: US)
  Receive Date: 20170424
  Receipt Date: 20170523
  Transmission Date: 20170830
  Serious: No
  Sender: FDA-Public Use
  Company Number: US-ASTRAZENECA-2017SE41206

PATIENT
  Sex: Male
  Weight: 90.7 kg

DRUGS (1)
  1. BYDUREON [Suspect]
     Active Substance: EXENATIDE
     Indication: TYPE 2 DIABETES MELLITUS
     Route: 058

REACTIONS (4)
  - Intentional product misuse [Unknown]
  - Visual acuity reduced [Unknown]
  - Hypoacusis [Unknown]
  - Device leakage [Unknown]
